FAERS Safety Report 9672129 (Version 2)
Quarter: 2014Q1

REPORT INFORMATION
  Report Type: Report from Study
  Country: FR (occurrence: FR)
  Receive Date: 20131106
  Receipt Date: 20140224
  Transmission Date: 20141002
  Serious: No
  Sender: FDA-Public Use
  Company Number: PHHY2013FR124014

PATIENT
  Age: 63 Year
  Sex: Female
  Weight: 52 kg

DRUGS (3)
  1. ACLASTA/ZOLEDRONATE [Suspect]
     Indication: OSTEOPOROSIS
     Route: 042
     Dates: start: 201202
  2. ACLASTA/ZOLEDRONATE [Suspect]
     Route: 042
     Dates: start: 201302
  3. LANSOPRAZOLE [Concomitant]
     Dosage: 30 MG, UNK
     Dates: start: 2013, end: 2013

REACTIONS (5)
  - Rib fracture [Recovering/Resolving]
  - Fall [Recovering/Resolving]
  - Pain [Not Recovered/Not Resolved]
  - Toothache [Not Recovered/Not Resolved]
  - Pain in jaw [Not Recovered/Not Resolved]
